FAERS Safety Report 5738634-4 (Version None)
Quarter: 2008Q2

REPORT INFORMATION
  Report Type: 
  Country: None (occurrence: None)
  Receive Date: 20080515
  Receipt Date: 20080506
  Transmission Date: 20081010
  Serious: Yes (Death, Hospitalization)
  Sender: FDA-Public Use
  Company Number: DE-BAYER-200816222GPV

PATIENT
  Sex: Male

DRUGS (18)
  1. FLUDARABINE PHOSPHATE [Suspect]
     Indication: B-CELL SMALL LYMPHOCYTIC LYMPHOMA
     Dosage: AS USED: 25 MG/M2
     Route: 065
     Dates: start: 20020101, end: 20020101
  2. FLUDARABINE PHOSPHATE [Suspect]
     Dosage: AS USED: 30 MG/M2
     Route: 065
     Dates: start: 20040101, end: 20040101
  3. ALEMTUZUMAB [Suspect]
     Indication: B-CELL SMALL LYMPHOCYTIC LYMPHOMA
     Dosage: AS USED: 30 MG
     Route: 065
     Dates: start: 20040101, end: 20040101
  4. ALEMTUZUMAB [Suspect]
     Dosage: AS USED: 10 MG
     Route: 065
     Dates: start: 20040101, end: 20040101
  5. ALEMTUZUMAB [Suspect]
     Dosage: AS USED: 5 MG
     Route: 065
     Dates: start: 20040101, end: 20040101
  6. ALEMTUZUMAB [Suspect]
     Dosage: AS USED: 20 MG
     Route: 065
     Dates: start: 20040101, end: 20040101
  7. PREDNISONE TAB [Suspect]
     Indication: B-CELL SMALL LYMPHOCYTIC LYMPHOMA
     Route: 065
     Dates: start: 20031001
  8. CYCLOPHOSPHAMIDE [Suspect]
     Indication: B-CELL SMALL LYMPHOCYTIC LYMPHOMA
     Dates: start: 20031001
  9. VINCRISTINE [Suspect]
     Indication: B-CELL SMALL LYMPHOCYTIC LYMPHOMA
     Route: 065
     Dates: start: 20031001
  10. DOXORUBICIN HCL [Suspect]
     Indication: B-CELL SMALL LYMPHOCYTIC LYMPHOMA
     Route: 065
     Dates: start: 20031001
  11. BUSULFAN [Suspect]
     Indication: BONE MARROW CONDITIONING REGIMEN
     Dosage: TOTAL DAILY DOSE: 4 MG/KG
     Route: 065
     Dates: start: 20040101, end: 20040101
  12. PREDNISOLONE [Suspect]
     Indication: BONE MARROW CONDITIONING REGIMEN
     Route: 065
     Dates: start: 20040101, end: 20040101
  13. PREDNISOLONE [Suspect]
     Route: 065
  14. PREDNISOLONE [Suspect]
     Route: 065
  15. PREDNISOLONE [Suspect]
  16. CYCLOSPORINE [Suspect]
     Indication: BONE MARROW CONDITIONING REGIMEN
     Dosage: TOTAL DAILY DOSE: 300 MG
     Route: 065
     Dates: start: 20040101, end: 20040101
  17. CYCLOSPORINE [Suspect]
     Dosage: TOTAL DAILY DOSE: 350 MG
     Dates: start: 20040101, end: 20040101
  18. CYCLOSPORINE [Suspect]
     Dosage: TOTAL DAILY DOSE: 400 MG
     Dates: start: 20040101, end: 20040101

REACTIONS (2)
  - ACUTE GRAFT VERSUS HOST DISEASE IN SKIN [None]
  - PROGRESSIVE MULTIFOCAL LEUKOENCEPHALOPATHY [None]
